FAERS Safety Report 6841961-0 (Version None)
Quarter: 2010Q3

REPORT INFORMATION
  Report Type: 
  Country: None (occurrence: None)
  Receive Date: 20100714
  Receipt Date: 20070717
  Transmission Date: 20110219
  Serious: No
  Sender: FDA-Public Use
  Company Number: US-PFIZER INC-2007060410

PATIENT
  Sex: Female
  Weight: 66.8 kg

DRUGS (11)
  1. CHANTIX [Suspect]
     Indication: SMOKING CESSATION THERAPY
     Dates: start: 20070619
  2. SYNTHROID [Concomitant]
     Indication: HYPOTHYROIDISM
  3. LISINOPRIL [Concomitant]
  4. PLAVIX [Concomitant]
  5. AVANDIA [Concomitant]
  6. ACETYLSALICYLIC ACID [Concomitant]
  7. VYTORIN [Concomitant]
     Dosage: 10/40 MG
  8. NORVASC [Concomitant]
  9. MULTI-VITAMINS [Concomitant]
  10. STOOL SOFTENER [Concomitant]
  11. ALL OTHER THERAPEUTIC PRODUCTS [Concomitant]

REACTIONS (2)
  - JOINT SWELLING [None]
  - OEDEMA PERIPHERAL [None]
